FAERS Safety Report 7318297-7 (Version None)
Quarter: 2011Q1

REPORT INFORMATION
  Report Type: 
  Country: None (occurrence: None)
  Receive Date: 20110228
  Receipt Date: 20110217
  Transmission Date: 20110831
  Serious: No
  Sender: FDA-Public Use
  Company Number: US-BIOGENIDEC-2011BI006445

PATIENT
  Age: 19 Year
  Sex: Female

DRUGS (1)
  1. AVONEX [Suspect]
     Indication: MULTIPLE SCLEROSIS
     Route: 030
     Dates: start: 20090906

REACTIONS (8)
  - EYE PAIN [None]
  - PARAESTHESIA [None]
  - HYPOAESTHESIA [None]
  - DEMYELINATION [None]
  - PYREXIA [None]
  - TOOTH DISORDER [None]
  - PHARYNGITIS STREPTOCOCCAL [None]
  - CHILLS [None]
